FAERS Safety Report 22298593 (Version 1)
Quarter: 2023Q2

REPORT INFORMATION
  Report Type: Spontaneous
  Country: ES (occurrence: ES)
  Receive Date: 20230509
  Receipt Date: 20230509
  Transmission Date: 20230721
  Serious: Yes (Other)
  Sender: FDA-Public Use
  Company Number: ES-ENDO PHARMACEUTICALS INC-2023-001776

PATIENT
  Age: 66 Year
  Sex: Female

DRUGS (4)
  1. AMANTADINE HYDROCHLORIDE [Suspect]
     Active Substance: AMANTADINE HYDROCHLORIDE
     Indication: Parkinsonism
     Dosage: 100 MG, BID
     Route: 065
  2. ENTACAPONE [Concomitant]
     Active Substance: ENTACAPONE
     Indication: Parkinsonism
     Dosage: 200 MG, TID
     Route: 065
  3. CARBIDOPA\LEVODOPA [Concomitant]
     Active Substance: CARBIDOPA\LEVODOPA
     Indication: Parkinson^s disease
     Dosage: UNK UNK, TID (25/250 MG)
     Route: 065
  4. CABERGOLINE [Concomitant]
     Active Substance: CABERGOLINE
     Indication: Parkinson^s disease
     Dosage: 2 MG, BID
     Route: 065

REACTIONS (1)
  - Inappropriate antidiuretic hormone secretion [Recovered/Resolved]
